FAERS Safety Report 13115211 (Version 4)
Quarter: 2017Q2

REPORT INFORMATION
  Report Type: Spontaneous
  Country: US (occurrence: US)
  Receive Date: 20170113
  Receipt Date: 20170502
  Transmission Date: 20170830
  Serious: No
  Sender: FDA-Public Use
  Company Number: US-009507513-1701USA004823

PATIENT
  Age: 42 Year
  Sex: Female
  Weight: 73.92 kg

DRUGS (1)
  1. NEXPLANON [Suspect]
     Active Substance: ETONOGESTREL
     Indication: CONTRACEPTION
     Dosage: UNK, LEFT ARM
     Route: 059
     Dates: start: 20160920

REACTIONS (4)
  - Complication associated with device [Unknown]
  - Drug dose omission [Recovered/Resolved]
  - Complication of device insertion [Recovered/Resolved]
  - Migration of implanted drug [Unknown]

NARRATIVE: CASE EVENT DATE: 20160920
